FAERS Safety Report 11107243 (Version 1)
Quarter: 2015Q2

REPORT INFORMATION
  Report Type: Spontaneous
  Country: US (occurrence: US)
  Receive Date: 20150512
  Receipt Date: 20150512
  Transmission Date: 20150821
  Serious: No
  Sender: FDA-Public Use
  Company Number: US-BAUSCH-BL-2015-000728

PATIENT
  Sex: Female

DRUGS (2)
  1. LATANOPROST OPHTHALMIC SOLUTION 0.005% [Suspect]
     Active Substance: LATANOPROST
     Indication: POSTOPERATIVE CARE
     Route: 047
     Dates: start: 2014
  2. LATANOPROST OPHTHALMIC SOLUTION 0.005% [Suspect]
     Active Substance: LATANOPROST
     Indication: INTRAOCULAR PRESSURE INCREASED

REACTIONS (3)
  - Ocular hyperaemia [Not Recovered/Not Resolved]
  - Headache [Not Recovered/Not Resolved]
  - Eye pruritus [Not Recovered/Not Resolved]
